FAERS Safety Report 18774289 (Version 6)
Quarter: 2021Q3

REPORT INFORMATION
  Report Type: Report from Study
  Country: UA (occurrence: UA)
  Receive Date: 20210122
  Receipt Date: 20210712
  Transmission Date: 20211014
  Serious: Yes (Death, Life-Threatening, Hospitalization, Disabling, Other)
  Sender: FDA-Public Use
  Company Number: UA-TEVA-2021-UA-1871257

PATIENT
  Age: 65 Year
  Sex: Male
  Weight: 68 kg

DRUGS (5)
  1. ENALAPRIL [Concomitant]
     Active Substance: ENALAPRIL
  2. OMEPRAZOLE. [Concomitant]
     Active Substance: OMEPRAZOLE
  3. CARBOPLATIN?TEVA [Suspect]
     Active Substance: CARBOPLATIN
     Indication: SQUAMOUS CELL CARCINOMA OF LUNG
     Route: 042
     Dates: start: 20201231, end: 20201231
  4. ALMAGEL A [Concomitant]
     Dates: start: 20201209, end: 20201222
  5. PACLITAXEL ACTAVIS [Suspect]
     Active Substance: PACLITAXEL
     Indication: SQUAMOUS CELL CARCINOMA OF LUNG
     Route: 042
     Dates: start: 20201231, end: 20201231

REACTIONS (2)
  - Myocardial infarction [Fatal]
  - Myocardial fibrosis [Fatal]

NARRATIVE: CASE EVENT DATE: 20201231
